FAERS Safety Report 8771307 (Version 1)
Quarter: 2012Q4

REPORT INFORMATION
  Report Type: Report from Study
  Country: GB (occurrence: GB)
  Receive Date: 20120906
  Receipt Date: 20120906
  Transmission Date: 20130627
  Serious: Yes (Other)
  Sender: FDA-Public Use
  Company Number: PHHO2012GB012858

PATIENT
  Age: 49 Year
  Weight: 99.7 kg

DRUGS (2)
  1. ZOLEDRONATE DISODIUM [Suspect]
     Indication: METASTASES TO BONE
     Dosage: 4 mg, UNK
     Route: 042
     Dates: start: 20050703
  2. ARIMIDEX [Concomitant]
     Dosage: 1 mg, QD
     Route: 048
     Dates: start: 20080619

REACTIONS (1)
  - Osteonecrosis of jaw [Recovered/Resolved]
